FAERS Safety Report 22724719 (Version 7)
Quarter: 2024Q4

REPORT INFORMATION
  Report Type: Report from Study
  Country: US (occurrence: US)
  Receive Date: 20230719
  Receipt Date: 20241224
  Transmission Date: 20250114
  Serious: Yes (Other)
  Sender: ABBVIE
  Company Number: US-ABBVIE-5332396

PATIENT
  Age: 74 Year
  Sex: Female

DRUGS (4)
  1. HUMIRA [Suspect]
     Active Substance: ADALIMUMAB
     Indication: Rheumatoid arthritis
     Dosage: CITRATE FREE?40 MG STRENGTH
     Route: 058
     Dates: start: 20151113
  2. HUMIRA [Suspect]
     Active Substance: ADALIMUMAB
     Dosage: CITRATE FREE?40 MG STRENGTH
     Route: 058
     Dates: start: 20131113
  3. HUMIRA [Suspect]
     Active Substance: ADALIMUMAB
     Route: 058
  4. METHYLCOBALAMIN [Suspect]
     Active Substance: METHYLCOBALAMIN
     Indication: Product used for unknown indication
     Route: 065

REACTIONS (14)
  - Loss of consciousness [Unknown]
  - Heart valve calcification [Unknown]
  - Sciatica [Unknown]
  - Psoriasis [Unknown]
  - Vomiting [Unknown]
  - Rheumatoid arthritis [Unknown]
  - Chemical poisoning [Unknown]
  - Neck pain [Unknown]
  - Pneumonia aspiration [Unknown]
  - Neuropathy peripheral [Unknown]
  - Skull fracture [Unknown]
  - Spondylitis [Unknown]
  - Headache [Unknown]
  - Pyrexia [Not Recovered/Not Resolved]

NARRATIVE: CASE EVENT DATE: 20200101
